FAERS Safety Report 9084078 (Version 1)
Quarter: 2013Q1

REPORT INFORMATION
  Report Type: Spontaneous
  Country: US (occurrence: US)
  Receive Date: 20130218
  Receipt Date: 20130218
  Transmission Date: 20140127
  Serious: Yes (Hospitalization)
  Sender: FDA-Public Use
  Company Number: PHEH2013US003321

PATIENT
  Age: 83 Year
  Sex: Male

DRUGS (13)
  1. EXELON PATCH [Suspect]
     Dosage: 4.6 MG, DAILY
     Route: 062
     Dates: start: 20130205
  2. OMEPRAZOLE [Concomitant]
     Dosage: 40 MG,DAILY
     Route: 048
  3. LISINOPRIL [Concomitant]
     Dosage: 25 MG, DAILY
     Route: 048
  4. TEMAZEPAM [Concomitant]
     Dosage: 15 MG, AT BEDTIME
     Route: 048
  5. METFORMIN [Concomitant]
     Dosage: 500 MG, 3 TIMES PER DAY
     Route: 048
  6. FLOMAX//TAMSULOSIN HYDROCHLORIDE [Concomitant]
     Dosage: 0.4 MG/ 24HRS (AT BED TIME)
     Route: 048
  7. XALATAN [Concomitant]
     Dosage: 2 DRP, DAILY
     Route: 047
  8. COSOPT [Concomitant]
     Dosage: 1 DRP, TWO TIMES PER DAY
     Route: 047
  9. PLAVIX [Concomitant]
     Dosage: 75 MG, DAILY
     Route: 048
  10. NIACIN [Concomitant]
     Dosage: 1000 MG, (AT BED TIME)
     Route: 048
  11. MULTI-VIT [Concomitant]
     Dosage: 1 DF, DAILY
     Route: 048
  12. ALPHAGAN [Concomitant]
     Dosage: 1 DRP, TOW TIMES PER DAY
  13. LIPITOR [Concomitant]
     Dosage: 40 MG (AT BED TIME)
     Route: 048

REACTIONS (7)
  - Type 2 diabetes mellitus [Unknown]
  - Drug hypersensitivity [Unknown]
  - Urticaria [Unknown]
  - Pruritus generalised [Unknown]
  - Rash generalised [Unknown]
  - Lip swelling [Unknown]
  - Hypertension [Unknown]
